FAERS Safety Report 9221412 (Version 1)
Quarter: 2013Q2

REPORT INFORMATION
  Report Type: Spontaneous
  Country: US (occurrence: US)
  Receive Date: 20130410
  Receipt Date: 20130410
  Transmission Date: 20140414
  Serious: Yes (Hospitalization)
  Sender: FDA-Public Use
  Company Number: US-GE HEALTHCARE MEDICAL DIAGNOSTICS-OMPQ-PR-1304S-0420

PATIENT
  Age: 61 Year
  Sex: Female
  Weight: 76.27 kg

DRUGS (8)
  1. OMNIPAQUE [Suspect]
     Indication: OROPHARYNGEAL PAIN
     Route: 042
     Dates: start: 20130404, end: 20130404
  2. OMNIPAQUE [Suspect]
     Indication: DIAGNOSTIC PROCEDURE
  3. LISINOPRIL [Concomitant]
  4. METFORMIN [Concomitant]
  5. ASPIRIN [Concomitant]
  6. GLYBURIDE [Concomitant]
  7. INDOMETACIN [Concomitant]
  8. JANUMET [Concomitant]

REACTIONS (5)
  - Wheezing [Unknown]
  - Dysphonia [Unknown]
  - Chest discomfort [Unknown]
  - Cough [Unknown]
  - Dyspnoea [Unknown]
